FAERS Safety Report 23856334 (Version 2)
Quarter: 2024Q2

REPORT INFORMATION
  Report Type: Report from Study
  Country: US (occurrence: US)
  Receive Date: 20240515
  Receipt Date: 20240619
  Transmission Date: 20240715
  Serious: Yes (Hospitalization)
  Sender: FDA-Public Use
  Company Number: US-JNJFOC-20240521671

PATIENT
  Age: 51 Year
  Sex: Female

DRUGS (5)
  1. SPRAVATO [Suspect]
     Active Substance: ESKETAMINE
     Indication: Depression
     Dosage: 56 MG, 66 TOTAL DOSES
     Dates: start: 20211001, end: 20240306
  2. SPRAVATO [Suspect]
     Active Substance: ESKETAMINE
     Dosage: 84 MG, 6 TOTAL DOSES
     Dates: start: 20211122, end: 20220713
  3. DULOXETINE [Concomitant]
     Active Substance: DULOXETINE
     Indication: Major depression
  4. QUETIAPINE [Concomitant]
     Active Substance: QUETIAPINE
     Indication: Major depression
  5. MODAFINIL [Concomitant]
     Active Substance: MODAFINIL

REACTIONS (1)
  - Wrist surgery [Unknown]

NARRATIVE: CASE EVENT DATE: 20240401
